FAERS Safety Report 16544390 (Version 3)
Quarter: 2019Q3

REPORT INFORMATION
  Report Type: Spontaneous
  Country: US (occurrence: US)
  Receive Date: 20190709
  Receipt Date: 20190731
  Transmission Date: 20191004
  Serious: No
  Sender: FDA-Public Use
  Company Number: US-PFIZER INC-2019294391

PATIENT
  Age: 58 Year
  Sex: Female
  Weight: 94.35 kg

DRUGS (7)
  1. FEMARA [Concomitant]
     Active Substance: LETROZOLE
     Dosage: UNK
  2. IBRANCE [Suspect]
     Active Substance: PALBOCICLIB
     Dosage: 75 MG, CYCLIC (ONCE A DAY 21 DAYS ON AND 7 DAYS OFF)
     Route: 048
     Dates: start: 20180502, end: 20190114
  3. PERJETA [Concomitant]
     Active Substance: PERTUZUMAB
     Indication: BREAST CANCER
     Dosage: UNK
  4. IBRANCE [Suspect]
     Active Substance: PALBOCICLIB
     Dosage: 75 MG, CYCLIC (EVERY DAY FOR 21 DAYS)
     Dates: start: 20190126
  5. LETROZOLE. [Suspect]
     Active Substance: LETROZOLE
     Indication: BREAST CANCER METASTATIC
     Dosage: 2.5 MG, 1X/DAY
  6. IBRANCE [Suspect]
     Active Substance: PALBOCICLIB
     Indication: BREAST CANCER METASTATIC
     Dosage: 75 MG, 1X/DAY
     Dates: start: 20180502
  7. HERCEPTIN [Concomitant]
     Active Substance: TRASTUZUMAB
     Indication: BREAST CANCER
     Dosage: UNK

REACTIONS (32)
  - Muscular weakness [Unknown]
  - Depressed mood [Unknown]
  - Abdominal distension [Unknown]
  - Tooth disorder [Recovered/Resolved]
  - Urinary tract infection [Unknown]
  - Photosensitivity reaction [Unknown]
  - Constipation [Unknown]
  - Muscle spasms [Unknown]
  - Arthralgia [Not Recovered/Not Resolved]
  - Headache [Recovered/Resolved]
  - Diarrhoea [Unknown]
  - Epistaxis [Unknown]
  - Pruritus [Unknown]
  - Back pain [Unknown]
  - Off label use [Unknown]
  - Restlessness [Unknown]
  - Nasal dryness [Unknown]
  - Eructation [Unknown]
  - Haemorrhoids [Unknown]
  - Fatigue [Recovered/Resolved]
  - Oropharyngeal pain [Recovered/Resolved]
  - Abdominal discomfort [Unknown]
  - Product use in unapproved indication [Unknown]
  - Product dose omission [Unknown]
  - Oral pain [Recovering/Resolving]
  - Paranasal sinus discomfort [Recovered/Resolved]
  - Vulvovaginal discomfort [Unknown]
  - Neck pain [Unknown]
  - Anorectal discomfort [Unknown]
  - Sinusitis [Unknown]
  - Anxiety [Recovered/Resolved]
  - Insomnia [Unknown]

NARRATIVE: CASE EVENT DATE: 2018
